FAERS Safety Report 9392841 (Version 1)
Quarter: 2013Q3

REPORT INFORMATION
  Report Type: Spontaneous
  Country: US (occurrence: US)
  Receive Date: 20130710
  Receipt Date: 20130710
  Transmission Date: 20140515
  Serious: No
  Sender: FDA-Public Use
  Company Number: US-BAYER-2013-083643

PATIENT
  Age: 65 Year
  Sex: Female
  Weight: 91 kg

DRUGS (4)
  1. ALEVE CAPLET [Suspect]
     Indication: ARTHRITIS
     Dosage: 2 DF, QD
     Route: 048
     Dates: start: 20130601
  2. LISINOPRIL [Concomitant]
  3. PRILOSEC [Concomitant]
  4. LYRICA [Concomitant]

REACTIONS (1)
  - Drug ineffective [None]
